FAERS Safety Report 9660567 (Version 2)
Quarter: 2013Q4

REPORT INFORMATION
  Report Type: Report from Study
  Country: FR (occurrence: FR)
  Receive Date: 20131031
  Receipt Date: 20131125
  Transmission Date: 20140711
  Serious: Yes (Death)
  Sender: FDA-Public Use
  Company Number: FR-PFIZER INC-2013307183

PATIENT
  Age: 51 Year
  Sex: Male
  Weight: 93 kg

DRUGS (4)
  1. ATGAM [Suspect]
     Indication: BONE MARROW FAILURE
     Dosage: 40 MG/KG, DAILY
     Route: 042
     Dates: start: 20130814, end: 20130817
  2. SOLU-MEDROL [Suspect]
     Indication: PREMEDICATION
     Dosage: 180 MG, UNK
     Route: 042
     Dates: start: 20130814
  3. INSULIN [Concomitant]
     Indication: DIABETES MELLITUS
     Dosage: AS NEEDED
     Route: 042
     Dates: start: 20130814
  4. POLARAMINE [Concomitant]
     Indication: PREMEDICATION

REACTIONS (8)
  - Stenotrophomonas infection [Fatal]
  - Cellulitis [Fatal]
  - Chills [Recovered/Resolved]
  - Hypertension [Recovering/Resolving]
  - Bradycardia [Recovering/Resolving]
  - Blood glucose fluctuation [Recovering/Resolving]
  - Headache [Recovered/Resolved]
  - Infusion site reaction [Unknown]
